FAERS Safety Report 6515810-4 (Version None)
Quarter: 2009Q4

REPORT INFORMATION
  Report Type: 
  Country: None (occurrence: None)
  Receive Date: 20091223
  Receipt Date: 20091221
  Transmission Date: 20100525
  Serious: Yes (Death, Other)
  Sender: FDA-Public Use
  Company Number: PHHY2009JP53380

PATIENT
  Age: 64 Year
  Sex: Female

DRUGS (2)
  1. SANDOSTATIN LAR [Suspect]
     Indication: ACROMEGALY
     Dosage: 20 MG-30 MG
     Route: 030
     Dates: start: 20071201, end: 20090406
  2. SANDOSTATIN LAR [Suspect]
     Indication: NEOPLASM MALIGNANT

REACTIONS (3)
  - CARDIO-RESPIRATORY ARREST [None]
  - MALIGNANT NEOPLASM PROGRESSION [None]
  - PITUITARY TUMOUR REMOVAL [None]
